FAERS Safety Report 5148387-9 (Version None)
Quarter: 2006Q4

REPORT INFORMATION
  Report Type: 
  Country: None (occurrence: None)
  Receive Date: 20061106
  Receipt Date: 20061024
  Transmission Date: 20070319
  Serious: Yes (Hospitalization, Other)
  Sender: FDA-Public Use
  Company Number: 2006127059

PATIENT
  Age: 46 Year
  Sex: Female

DRUGS (2)
  1. CETIRIZINE HCL [Suspect]
  2. HYOSCINE HBR HYT [Suspect]
     Indication: COMPUTERISED TOMOGRAM
     Dosage: 20  MG (1 D), INTRAVENOUS
     Route: 042

REACTIONS (6)
  - ANGINA PECTORIS [None]
  - ARTERIOSPASM CORONARY [None]
  - CHEST PAIN [None]
  - DRUG INTERACTION [None]
  - MUSCLE TWITCHING [None]
  - PALLOR [None]
